FAERS Safety Report 9174274 (Version 1)
Quarter: 2013Q1

REPORT INFORMATION
  Report Type: Spontaneous
  Country: US (occurrence: US)
  Receive Date: 20130320
  Receipt Date: 20130320
  Transmission Date: 20140127
  Serious: Yes (Life-Threatening, Other)
  Sender: FDA-Public Use
  Company Number: US-JNJFOC-20130307966

PATIENT
  Sex: Female

DRUGS (2)
  1. DOXORUBICIN HYDROCHLORIDE [Suspect]
     Indication: OVARIAN CANCER RECURRENT
     Dosage: DAY 1
     Route: 042
  2. INTERLEUKINS [Suspect]
     Indication: OVARIAN CANCER RECURRENT
     Dosage: 1, 3, 10, 30 AND 100 MG/KG ON DAYS 2 AND 9 OF EACH CYCLE
     Route: 065

REACTIONS (18)
  - Ovarian cancer recurrent [Unknown]
  - Pain [Unknown]
  - Abdominal pain [Unknown]
  - Dehydration [Unknown]
  - Type III immune complex mediated reaction [Unknown]
  - Fatigue [Unknown]
  - Hyperglycaemia [Unknown]
  - Nausea [Unknown]
  - Vomiting [Unknown]
  - Jaundice [Unknown]
  - Hyperkalaemia [Unknown]
  - Pyrexia [Unknown]
  - Chills [Unknown]
  - Asthenia [Unknown]
  - Oedema [Unknown]
  - Pyelonephritis [Unknown]
  - Cytokine release syndrome [Unknown]
  - Anaemia [Unknown]
